FAERS Safety Report 14674565 (Version 2)
Quarter: 2018Q4

REPORT INFORMATION
  Report Type: Spontaneous
  Country: NL (occurrence: NL)
  Receive Date: 20180323
  Receipt Date: 20181107
  Transmission Date: 20190204
  Serious: Yes (Other)
  Sender: FDA-Public Use
  Company Number: NL-JUBILANT CADISTA PHARMACEUTICALS-2018JUB00079

PATIENT
  Age: 43 Year
  Sex: Female

DRUGS (7)
  1. FOLIC ACID. [Suspect]
     Active Substance: FOLIC ACID
     Indication: ANAEMIA
     Dosage: 0.5 MG, 1X/DAY
     Route: 065
  2. OVER-THE-COUNTER MULTIVITAMIN [Concomitant]
     Indication: SUPPLEMENTATION THERAPY
     Dosage: 2 TABLETS, 1X/DAY
     Route: 065
  3. IRON [Concomitant]
     Active Substance: IRON
     Indication: ANAEMIA
     Dosage: 1000 MG
     Route: 042
  4. MINERAL SUPPLEMENT [Concomitant]
     Indication: SUPPLEMENTATION THERAPY
     Dosage: UNK, 1X/DAY
     Route: 065
  5. VITAMIN D [Concomitant]
     Active Substance: CHOLECALCIFEROL
     Indication: ANAEMIA
     Dosage: 800 IU, 1X/DAY
     Route: 065
  6. VITAMIN D [Concomitant]
     Active Substance: CHOLECALCIFEROL
     Dosage: 50000 IU, 1X/WEEK
     Route: 065
  7. CALCIUM CARBONATE. [Concomitant]
     Active Substance: CALCIUM CARBONATE
     Dosage: 1000 MG, 1X/DAY
     Route: 065

REACTIONS (1)
  - Acute polyneuropathy [Recovered/Resolved]
